FAERS Safety Report 12235322 (Version 4)
Quarter: 2016Q2

REPORT INFORMATION
  Report Type: Spontaneous
  Country: US (occurrence: US)
  Receive Date: 20160404
  Receipt Date: 20160526
  Transmission Date: 20160815
  Serious: Yes (Other)
  Sender: FDA-Public Use
  Company Number: US-TEVA-647802USA

PATIENT
  Age: 26 Year
  Sex: Female

DRUGS (1)
  1. ZECUITY [Suspect]
     Active Substance: SUMATRIPTAN SUCCINATE
     Route: 062
     Dates: start: 20160317

REACTIONS (10)
  - Application site swelling [Unknown]
  - Migraine [Unknown]
  - Application site erythema [Unknown]
  - Application site discolouration [Not Recovered/Not Resolved]
  - Application site scar [Unknown]
  - Application site exfoliation [Unknown]
  - Application site inflammation [Unknown]
  - Rash erythematous [Recovered/Resolved]
  - Application site pain [Not Recovered/Not Resolved]
  - Application site burn [Unknown]

NARRATIVE: CASE EVENT DATE: 20160317
